FAERS Safety Report 14820224 (Version 1)
Quarter: 2018Q2

REPORT INFORMATION
  Report Type: Spontaneous
  Country: JP (occurrence: JP)
  Receive Date: 20180427
  Receipt Date: 20180427
  Transmission Date: 20180711
  Serious: Yes (Other)
  Sender: FDA-Public Use
  Company Number: JP-ELI_LILLY_AND_COMPANY-JP201712003354

PATIENT
  Age: 65 Year
  Sex: Female

DRUGS (2)
  1. CYRAMZA [Suspect]
     Active Substance: RAMUCIRUMAB
     Indication: LUNG CANCER METASTATIC
     Dosage: UNK
     Route: 041
  2. DOCETAXEL. [Concomitant]
     Active Substance: DOCETAXEL
     Indication: LUNG CANCER METASTATIC
     Dosage: UNK

REACTIONS (1)
  - Haemangioma of skin [Not Recovered/Not Resolved]
